FAERS Safety Report 7110884-4 (Version None)
Quarter: 2010Q4

REPORT INFORMATION
  Report Type: 
  Country: None (occurrence: None)
  Receive Date: 20101118
  Receipt Date: 20101111
  Transmission Date: 20110411
  Serious: Yes (Hospitalization)
  Sender: FDA-Public Use
  Company Number: PHHY2010US77350

PATIENT
  Age: 20 Year
  Sex: Female

DRUGS (1)
  1. TOBI [Suspect]
     Indication: INFECTION
     Dosage: 300 MG, BID 28 DAYS ON THEN 28 DAYS OFF
     Dates: start: 20080922

REACTIONS (1)
  - NASOPHARYNGITIS [None]
